FAERS Safety Report 4804663-8 (Version None)
Quarter: 2005Q4

REPORT INFORMATION
  Report Type: 
  Country: None (occurrence: None)
  Receive Date: 20051014
  Receipt Date: 20051002
  Transmission Date: 20060501
  Serious: No
  Sender: FDA-Public Use
  Company Number: 051008-0000960

PATIENT

DRUGS (3)
  1. PENTOBARBITAL SODIUM [Suspect]
     Indication: SEDATION
     Dosage: PRN; IV
     Route: 042
  2. FENTANYL [Suspect]
     Indication: SEDATION
     Dosage: 1X; IV
     Route: 042
  3. MIDAZOLAM HCL [Suspect]
     Indication: SEDATION
     Dosage: 0.05 MG; 1X; IV
     Route: 042

REACTIONS (1)
  - ASPIRATION [None]
